FAERS Safety Report 12902612 (Version 1)
Quarter: 2016Q4

REPORT INFORMATION
  Report Type: Spontaneous
  Country: US (occurrence: US)
  Receive Date: 20161102
  Receipt Date: 20161102
  Transmission Date: 20170207
  Serious: No
  Sender: FDA-Public Use
  Company Number: US-GLAXOSMITHKLINE-US2016158649

PATIENT
  Age: 78 Year
  Sex: Female

DRUGS (7)
  1. SYNTHROID [Concomitant]
     Active Substance: LEVOTHYROXINE SODIUM
  2. XYLIMELTS [Concomitant]
  3. ZETIA [Concomitant]
     Active Substance: EZETIMIBE
  4. PRILOSEC [Concomitant]
     Active Substance: OMEPRAZOLE MAGNESIUM
  5. REVATIO [Concomitant]
     Active Substance: SILDENAFIL CITRATE
  6. WARFARIN [Concomitant]
     Active Substance: WARFARIN
  7. BREO ELLIPTA [Suspect]
     Active Substance: FLUTICASONE FUROATE\VILANTEROL TRIFENATATE
     Indication: ASTHMA
     Dosage: 1 PUFF(S), QD
     Route: 055
     Dates: start: 20161012, end: 20161025

REACTIONS (7)
  - Dysphonia [Not Recovered/Not Resolved]
  - Throat irritation [Not Recovered/Not Resolved]
  - Aphonia [Not Recovered/Not Resolved]
  - Rhinorrhoea [Not Recovered/Not Resolved]
  - Cough [Unknown]
  - Dry mouth [Not Recovered/Not Resolved]
  - Oropharyngeal pain [Not Recovered/Not Resolved]

NARRATIVE: CASE EVENT DATE: 20161014
